FAERS Safety Report 9296897 (Version 1)
Quarter: 2013Q2

REPORT INFORMATION
  Report Type: Spontaneous
  Country: US (occurrence: US)
  Receive Date: 20130517
  Receipt Date: 20130517
  Transmission Date: 20140414
  Serious: No
  Sender: FDA-Public Use
  Company Number: US-009507513-1305USA008448

PATIENT
  Age: 59 Year
  Sex: Female

DRUGS (7)
  1. JANUVIA [Suspect]
     Indication: DIABETES MELLITUS
     Dosage: 100 MG, ONCE DAILY
     Route: 048
     Dates: start: 20130512
  2. FLECAINIDE ACETATE [Concomitant]
  3. TOPROL XL TABLETS [Concomitant]
  4. COUMADIN [Concomitant]
  5. LOSARTAN POTASSIUM [Concomitant]
  6. CELEBREX [Concomitant]
  7. PROTONIX [Concomitant]

REACTIONS (5)
  - Facial pain [Not Recovered/Not Resolved]
  - Swelling [Not Recovered/Not Resolved]
  - Axillary pain [Not Recovered/Not Resolved]
  - Lymph node pain [Not Recovered/Not Resolved]
  - Bone pain [Not Recovered/Not Resolved]
